FAERS Safety Report 24364026 (Version 3)
Quarter: 2024Q4

REPORT INFORMATION
  Report Type: Spontaneous
  Country: IE (occurrence: IE)
  Receive Date: 20240925
  Receipt Date: 20241107
  Transmission Date: 20250115
  Serious: Yes (Death, Hospitalization, Other)
  Sender: TEVA
  Company Number: None

PATIENT
  Age: 60 Year
  Sex: Female

DRUGS (20)
  1. VANCOMYCIN [Suspect]
     Active Substance: VANCOMYCIN
     Indication: Product used for unknown indication
     Dosage: 2G LOADING DOSE, VANCOMYCIN (G)
     Route: 042
     Dates: start: 20210924, end: 20210929
  2. PIPERACILLIN SODIUM\TAZOBACTAM SODIUM [Suspect]
     Active Substance: PIPERACILLIN SODIUM\TAZOBACTAM SODIUM
     Indication: Product used for unknown indication
     Route: 042
     Dates: start: 20210924, end: 20211004
  3. HYDROCORTISONE [Concomitant]
     Active Substance: HYDROCORTISONE
     Indication: Product used for unknown indication
     Dosage: HYDROCORTISONE (GENERIC)
     Route: 042
     Dates: start: 20210915
  4. HYDROCORTISONE [Concomitant]
     Active Substance: HYDROCORTISONE
     Indication: Product used for unknown indication
     Route: 042
     Dates: start: 20210919
  5. PREDNISONE [Concomitant]
     Active Substance: PREDNISONE
     Indication: Product used for unknown indication
     Route: 065
     Dates: end: 20210914
  6. PREDNISONE [Concomitant]
     Active Substance: PREDNISONE
     Indication: Product used for unknown indication
     Route: 065
     Dates: start: 20211007
  7. FENTANYL [Concomitant]
     Active Substance: FENTANYL
     Indication: Product used for unknown indication
     Dosage: REDUCED, FENTANYL PATCH
     Route: 065
     Dates: start: 20210915
  8. AZITHROMYCIN [Suspect]
     Active Substance: AZITHROMYCIN
     Indication: Product used for unknown indication
     Dosage: AZITHROMYCIN (GENERIC)
     Route: 065
  9. AZITHROMYCIN [Suspect]
     Active Substance: AZITHROMYCIN
     Indication: Product used for unknown indication
     Route: 065
  10. AZITHROMYCIN [Suspect]
     Active Substance: AZITHROMYCIN
     Indication: Product used for unknown indication
     Route: 065
  11. CIPROFLOXACIN [Suspect]
     Active Substance: CIPROFLOXACIN
     Indication: Antibiotic therapy
     Dosage: CIPROFLOXACIN (GENERIC)
     Route: 065
     Dates: start: 20211102, end: 20211108
  12. FLAGYL [Suspect]
     Active Substance: METRONIDAZOLE\METRONIDAZOLE HYDROCHLORIDE
     Indication: Antibiotic therapy
     Route: 065
     Dates: start: 20211102, end: 20211108
  13. FLAGYL [Suspect]
     Active Substance: METRONIDAZOLE\METRONIDAZOLE HYDROCHLORIDE
     Indication: Antibiotic therapy
     Route: 042
     Dates: start: 20211026, end: 20211029
  14. FLAGYL [Suspect]
     Active Substance: METRONIDAZOLE\METRONIDAZOLE HYDROCHLORIDE
     Indication: Antibiotic therapy
     Route: 042
     Dates: start: 20211015, end: 20211021
  15. FLAGYL [Suspect]
     Active Substance: METRONIDAZOLE\METRONIDAZOLE HYDROCHLORIDE
     Indication: Antibiotic therapy
     Dosage: FLAGYL (GENERIC)
     Route: 042
     Dates: start: 20210913, end: 20210917
  16. AUGMENTIN [Suspect]
     Active Substance: AMOXICILLIN\CLAVULANATE POTASSIUM
     Indication: Antibiotic therapy
     Route: 048
     Dates: start: 20211029, end: 20211102
  17. AUGMENTIN [Suspect]
     Active Substance: AMOXICILLIN\CLAVULANATE POTASSIUM
     Indication: Antibiotic therapy
     Route: 042
     Dates: start: 20211015, end: 20211021
  18. AUGMENTIN [Suspect]
     Active Substance: AMOXICILLIN\CLAVULANATE POTASSIUM
     Indication: Antibiotic therapy
     Dosage: AUGMENTIN (GENERIC)
     Route: 042
     Dates: start: 20210913, end: 20210917
  19. AUGMENTIN [Suspect]
     Active Substance: AMOXICILLIN\CLAVULANATE POTASSIUM
     Indication: Antibiotic therapy
     Route: 042
     Dates: start: 20211026, end: 20211029
  20. AUGMENTIN [Suspect]
     Active Substance: AMOXICILLIN\CLAVULANATE POTASSIUM
     Indication: Antibiotic therapy
     Route: 048
     Dates: start: 20211004, end: 20211008

REACTIONS (26)
  - Acute kidney injury [Fatal]
  - Vomiting [Unknown]
  - Hypophagia [Unknown]
  - Post procedural sepsis [Unknown]
  - Abdominal sepsis [Fatal]
  - Altered state of consciousness [Unknown]
  - Asthenia [Unknown]
  - Malnutrition [Unknown]
  - Fluid intake reduced [Unknown]
  - Body temperature increased [Unknown]
  - Refeeding syndrome [Unknown]
  - Inflammation [Unknown]
  - Malaise [Unknown]
  - COVID-19 [Fatal]
  - Gait disturbance [Unknown]
  - Gastrointestinal stoma output increased [Unknown]
  - Anaemia postoperative [Unknown]
  - Lethargy [Unknown]
  - Pallor [Unknown]
  - Fatigue [Unknown]
  - Enterococcal infection [Fatal]
  - Pain [Unknown]
  - Weight decreased [Unknown]
  - Ileus [Unknown]
  - Renal failure [Fatal]
  - Slow response to stimuli [Unknown]

NARRATIVE: CASE EVENT DATE: 20210101
